FAERS Safety Report 5405524-6 (Version None)
Quarter: 2007Q3

REPORT INFORMATION
  Report Type: 
  Country: None (occurrence: None)
  Receive Date: 20070803
  Receipt Date: 20070724
  Transmission Date: 20080115
  Serious: Yes (Other)
  Sender: FDA-Public Use
  Company Number: CZ-PFIZER INC-2007061836

PATIENT
  Age: 38 Year
  Sex: Male

DRUGS (2)
  1. ALPRAZOLAM [Suspect]
  2. DIAZEPAM [Suspect]

REACTIONS (3)
  - DRUG DEPENDENCE [None]
  - NARCISSISTIC PERSONALITY DISORDER [None]
  - PANIC DISORDER [None]
